FAERS Safety Report 9215052 (Version 1)
Quarter: 2013Q2

REPORT INFORMATION
  Report Type: Spontaneous
  Country: US (occurrence: US)
  Receive Date: 20130405
  Receipt Date: 20130405
  Transmission Date: 20140414
  Serious: Yes (Hospitalization)
  Sender: FDA-Public Use
  Company Number: US-BAYER-2013-040507

PATIENT
  Age: 46 Year
  Sex: Female
  Weight: 97.7 kg

DRUGS (14)
  1. YAZ [Suspect]
     Dosage: UNK
  2. YASMIN [Suspect]
     Dosage: UNK
  3. ACYCLOVIR [ACICLOVIR SODIUM] [Concomitant]
     Dosage: 200 MG, UNK
  4. LISINOPRIL [Concomitant]
     Dosage: 5 MG, DAILY
  5. VESICARE [Concomitant]
     Dosage: 10 MG, DAILY
  6. LEVOTHYROXINE [Concomitant]
     Dosage: 125 MCG, DAILY
  7. POTASSIUM CHLORIDE [Concomitant]
     Dosage: DAILY
  8. MULTIVITAMIN [Concomitant]
     Dosage: DAILY
  9. HYDROCHLOROTHIAZIDE [Concomitant]
     Dosage: 12.5 MG, DAILY
  10. PAXIL CR [Concomitant]
     Dosage: 37.5 MG,DAILY
  11. FISH OIL [Concomitant]
     Dosage: 1000 MG, BID
     Route: 048
  12. CELEBREX [Concomitant]
     Dosage: 200 MG, DAILY
  13. LORTAB [Concomitant]
     Dosage: 7.5/500 PRN EVERY 6 HOURS
  14. ALESSE [Concomitant]

REACTIONS (2)
  - Pulmonary embolism [None]
  - Deep vein thrombosis [None]
